FAERS Safety Report 21203726 (Version 1)
Quarter: 2022Q3

REPORT INFORMATION
  Report Type: Spontaneous
  Country: US (occurrence: None)
  Receive Date: 20220811
  Receipt Date: 20220811
  Transmission Date: 20221027
  Serious: Yes (Other)
  Sender: FDA-Public Use
  Company Number: 2022A276912

PATIENT
  Age: 60 Year

DRUGS (1)
  1. SYMBICORT [Suspect]
     Active Substance: BUDESONIDE\FORMOTEROL FUMARATE DIHYDRATE
     Indication: Asthma
     Dosage: 160MCG/4.5 MCG AS 2 PUFFS TWICE A DAY
     Route: 055
     Dates: start: 20220730, end: 20220802

REACTIONS (7)
  - Angioedema [Unknown]
  - Pharyngeal erythema [Unknown]
  - Enlarged uvula [Unknown]
  - Hiccups [Unknown]
  - Oropharyngeal pain [Unknown]
  - Lip swelling [Unknown]
  - Cough [Unknown]

NARRATIVE: CASE EVENT DATE: 20220731
